FAERS Safety Report 21300961 (Version 1)
Quarter: 2022Q3

REPORT INFORMATION
  Report Type: Spontaneous
  Country: PT (occurrence: PT)
  Receive Date: 20220907
  Receipt Date: 20220907
  Transmission Date: 20221027
  Serious: Yes (Life-Threatening, Other)
  Sender: FDA-Public Use
  Company Number: PT-INFARMED-R202208-4245

PATIENT
  Age: 36 Year
  Sex: Female
  Weight: 60 kg

DRUGS (2)
  1. TRAMADOL [Suspect]
     Active Substance: TRAMADOL
     Indication: Renal colic
     Dosage: INTRAVENOUS SOLUTION - LABORATORY AND DOSAGE UNKNOWN
     Route: 065
     Dates: start: 20220511, end: 20220511
  2. METOCLOPRAMIDE HYDROCHLORIDE [Suspect]
     Active Substance: METOCLOPRAMIDE HYDROCHLORIDE
     Indication: Renal colic
     Dosage: INTRAVENOUS SOLUTION
     Route: 065
     Dates: start: 20220511, end: 20220511

REACTIONS (8)
  - Hypotonia [Recovered/Resolved]
  - Rash [Recovered/Resolved]
  - Dyskinesia [Recovered/Resolved]
  - Wheezing [Recovered/Resolved]
  - Vision blurred [Recovered/Resolved]
  - Loss of consciousness [Recovered/Resolved]
  - Hypoxia [Recovered/Resolved]
  - Mechanical ventilation [Recovered/Resolved]

NARRATIVE: CASE EVENT DATE: 20220511
